FAERS Safety Report 19867136 (Version 1)
Quarter: 2021Q3

REPORT INFORMATION
  Report Type: Spontaneous
  Country: US (occurrence: US)
  Receive Date: 20210921
  Receipt Date: 20210921
  Transmission Date: 20211014
  Serious: No
  Sender: FDA-Public Use
  Company Number: US-BRAINTREE LABORATORIES, INC.-2021BTE00030

PATIENT
  Age: 73 Year
  Sex: Female
  Weight: 64.4 kg

DRUGS (11)
  1. VITAMIN D [Concomitant]
     Active Substance: VITAMIN D NOS
  2. MAGNESIUM [Concomitant]
     Active Substance: MAGNESIUM
  3. SUPREP BOWEL PREP [Suspect]
     Active Substance: MAGNESIUM SULFATE\POTASSIUM SULFATE\SODIUM SULFATE
     Indication: COLONOSCOPY
     Dosage: 2 X 6 OZ. BOTTLE, 1X
     Route: 048
     Dates: start: 20210113, end: 20210114
  4. SYSTANE (HYPROMELLOSE 2910 (4000 MPA.S)) [Concomitant]
     Active Substance: HYPROMELLOSE 2910 (4000 MPA.S)
     Dosage: UNK, HAD NOT BEEN USING ALL THE TIME
     Dates: end: 202101
  5. CALCIUM [Concomitant]
     Active Substance: CALCIUM
  6. FISH OIL [Concomitant]
     Active Substance: FISH OIL
  7. UNSPECIFIED VITAMIN [Concomitant]
     Active Substance: VITAMINS
  8. SYSTANE (HYPROMELLOSE 2910 (4000 MPA.S)) [Concomitant]
     Active Substance: HYPROMELLOSE 2910 (4000 MPA.S)
     Dosage: UNK, DAILY
     Dates: start: 202101
  9. VALACYCLOVIR [Concomitant]
     Active Substance: VALACYCLOVIR HYDROCHLORIDE
  10. TRAMADOL. [Concomitant]
     Active Substance: TRAMADOL
  11. ^PAN?SOMETHING^ [Concomitant]

REACTIONS (10)
  - Vision blurred [Recovering/Resolving]
  - Fear [Unknown]
  - Product administration error [Recovered/Resolved]
  - Ocular hyperaemia [Recovered/Resolved]
  - Anxiety [Unknown]
  - Dehydration [Recovered/Resolved]
  - Tremor [Recovered/Resolved]
  - Unevaluable event [Unknown]
  - Feeling cold [Recovered/Resolved]
  - Eye pain [Recovering/Resolving]

NARRATIVE: CASE EVENT DATE: 202101
